FAERS Safety Report 9745307 (Version 1)
Quarter: 2013Q4

REPORT INFORMATION
  Report Type: Spontaneous
  Country: JP (occurrence: JP)
  Receive Date: 20131211
  Receipt Date: 20131211
  Transmission Date: 20140711
  Serious: Yes (Other)
  Sender: FDA-Public Use
  Company Number: JP-ELI_LILLY_AND_COMPANY-JP201312000709

PATIENT
  Age: 47 Year
  Sex: Male

DRUGS (1)
  1. ZYPREXA [Suspect]
     Indication: SUICIDE ATTEMPT
     Dosage: 65 MG, UNK
     Route: 048
     Dates: start: 20131126, end: 20131126

REACTIONS (3)
  - Toxicity to various agents [Unknown]
  - Intentional drug misuse [Unknown]
  - Intentional overdose [Unknown]
